FAERS Safety Report 8462594-9 (Version None)
Quarter: 2012Q2

REPORT INFORMATION
  Report Type: 
  Country: None (occurrence: None)
  Receive Date: 20120625
  Receipt Date: 20120424
  Transmission Date: 20120825
  Serious: No
  Sender: FDA-Public Use
  Company Number: US-BAUSCH-2012BL002852

PATIENT
  Age: 44 Year
  Sex: Female

DRUGS (13)
  1. BESIVANCE [Suspect]
     Indication: PROPHYLAXIS
     Route: 047
     Dates: start: 20120205, end: 20120214
  2. REFRESH [Concomitant]
     Dates: start: 20120205, end: 20120303
  3. REFRESH PM [Concomitant]
     Dates: start: 20120303
  4. ASCORBIC ACID [Concomitant]
     Dates: start: 20120205
  5. ACUVAIL [Concomitant]
     Dates: start: 20120205
  6. DEXAMETHASONE SODIUM PHOSPHATE OPHTHALMIC SOLUTION,0.1% [Concomitant]
     Dates: start: 20120426
  7. BESIVANCE [Suspect]
     Route: 047
     Dates: start: 20120311, end: 20120316
  8. PREDNISOLONE SODIUM PHOSPHATE [Concomitant]
     Dates: start: 20120303
  9. BALANCED SALT SOLUTION [Concomitant]
     Indication: INTRAOPERATIVE CARE
     Dates: start: 20120204, end: 20120204
  10. BESIVANCE [Suspect]
     Indication: OFF LABEL USE
     Route: 047
     Dates: start: 20120205, end: 20120214
  11. BESIVANCE [Suspect]
     Route: 047
     Dates: start: 20120311, end: 20120316
  12. GENTEAL SEVERE LUBRICANT EYE GEL [Concomitant]
     Dates: start: 20120303
  13. MITOMYCIN [Concomitant]
     Dates: start: 20120310, end: 20120310

REACTIONS (4)
  - CORNEAL EROSION [None]
  - CORNEAL OPACITY [None]
  - IMPAIRED HEALING [None]
  - CORNEAL EPITHELIUM DEFECT [None]
